FAERS Safety Report 8614724-3 (Version None)
Quarter: 2012Q3

REPORT INFORMATION
  Report Type: 
  Country: None (occurrence: None)
  Receive Date: 20120823
  Receipt Date: 20120816
  Transmission Date: 20120928
  Serious: Yes (Death, Hospitalization, Other)
  Sender: FDA-Public Use
  Company Number: US-CELGENEUS-163-21880-12070233

PATIENT
  Sex: Female

DRUGS (1)
  1. REVLIMID [Suspect]
     Indication: MULTIPLE MYELOMA
     Dosage: 3.75 MILLIGRAM
     Route: 048
     Dates: start: 20101217, end: 20120623

REACTIONS (4)
  - HAEMATOMA [None]
  - HIP FRACTURE [None]
  - FALL [None]
  - DEATH [None]
